FAERS Safety Report 16056440 (Version 3)
Quarter: 2020Q1

REPORT INFORMATION
  Report Type: Spontaneous
  Country: US (occurrence: US)
  Receive Date: 20190311
  Receipt Date: 20200211
  Transmission Date: 20200409
  Serious: Yes (Hospitalization, Other)
  Sender: FDA-Public Use
  Company Number: US-ASTRAZENECA-2018SF26601

PATIENT
  Age: 12503 Day
  Sex: Male

DRUGS (19)
  1. NEXIUM [Suspect]
     Active Substance: ESOMEPRAZOLE MAGNESIUM
     Route: 048
     Dates: start: 1997, end: 2006
  2. AMLODIPINE [Concomitant]
     Active Substance: AMLODIPINE BESYLATE
     Dates: start: 20081212
  3. CALCITROL [Concomitant]
     Dates: start: 20081212
  4. HYDRALAZINE [Concomitant]
     Active Substance: HYDRALAZINE HYDROCHLORIDE
     Dates: start: 20081212
  5. PROTONIX [Suspect]
     Active Substance: PANTOPRAZOLE SODIUM
     Route: 065
     Dates: start: 1997, end: 2006
  6. PREVACID [Suspect]
     Active Substance: LANSOPRAZOLE
     Route: 065
     Dates: start: 1997, end: 2006
  7. PREVACID 24 HR [Suspect]
     Active Substance: LANSOPRAZOLE
     Route: 065
     Dates: start: 1997, end: 2006
  8. METOPROLOL. [Concomitant]
     Active Substance: METOPROLOL
     Dates: start: 20081212
  9. ALLOPURINOL. [Concomitant]
     Active Substance: ALLOPURINOL
     Dates: start: 20081212
  10. ISONIAZID. [Concomitant]
     Active Substance: ISONIAZID
     Dates: start: 20081212
  11. NEXIUM 24HR [Suspect]
     Active Substance: ESOMEPRAZOLE MAGNESIUM
     Route: 048
     Dates: start: 1997, end: 2006
  12. PHOSLO [Concomitant]
     Active Substance: CALCIUM ACETATE
     Dates: start: 20081212
  13. NEPHROCAPS [Concomitant]
     Active Substance: ASCORBIC ACID\BIOTIN\CYANOCOBALAMIN\FOLIC ACID\NIACIN\PANTOTHENIC ACID\PYRIDOXINE\RIBOFLAVIN\THIAMINE
     Dates: start: 20081212
  14. PRILOSEC [Suspect]
     Active Substance: OMEPRAZOLE MAGNESIUM
     Route: 048
     Dates: start: 1997, end: 2006
  15. DEXILANT [Suspect]
     Active Substance: DEXLANSOPRAZOLE
     Route: 065
     Dates: start: 1997, end: 2006
  16. BENICAR [Concomitant]
     Active Substance: OLMESARTAN MEDOXOMIL
     Dates: start: 20081212
  17. RENAGEL [Concomitant]
     Active Substance: SEVELAMER HYDROCHLORIDE
     Dates: start: 20081212
  18. PRILOSEC OTC [Suspect]
     Active Substance: OMEPRAZOLE MAGNESIUM
     Route: 048
     Dates: start: 1997, end: 2006
  19. CATAPRES-TTS [Concomitant]
     Active Substance: CLONIDINE
     Dates: start: 20081212

REACTIONS (3)
  - Renal injury [Unknown]
  - End stage renal disease [Unknown]
  - Chronic kidney disease [Unknown]

NARRATIVE: CASE EVENT DATE: 20081212
